FAERS Safety Report 4521411-X (Version None)
Quarter: 2004Q4

REPORT INFORMATION
  Report Type: 
  Country: None (occurrence: None)
  Receive Date: 20041208
  Receipt Date: 20041122
  Transmission Date: 20050328
  Serious: Yes (Other)
  Sender: FDA-Public Use
  Company Number: US-MERCK-0411USA03576

PATIENT
  Sex: Female

DRUGS (1)
  1. VIOXX [Suspect]
     Route: 048
     Dates: start: 20000901, end: 20010401

REACTIONS (8)
  - BACK DISORDER [None]
  - CARDIAC VALVE DISEASE [None]
  - CARDIOMEGALY [None]
  - DYSPNOEA [None]
  - GASTROINTESTINAL DISORDER [None]
  - GOUT [None]
  - LUNG DISORDER [None]
  - NEUROPATHY [None]
